FAERS Safety Report 16026043 (Version 3)
Quarter: 2019Q2

REPORT INFORMATION
  Report Type: Spontaneous
  Country: RO (occurrence: RO)
  Receive Date: 20190302
  Receipt Date: 20190409
  Transmission Date: 20190711
  Serious: Yes (Other)
  Sender: FDA-Public Use
  Company Number: RO-AUROBINDO-AUR-APL-2019-011065

PATIENT

DRUGS (6)
  1. ICLUSIG [Suspect]
     Active Substance: PONATINIB
     Dosage: UNK, 1/2 DOSE
     Route: 065
     Dates: start: 20190207, end: 20190219
  2. ICLUSIG [Suspect]
     Active Substance: PONATINIB
     Dosage: 30 MILLIGRAM, ONCE A DAY
     Route: 048
     Dates: start: 20190220
  3. CIPROFLOXACIN. [Suspect]
     Active Substance: CIPROFLOXACIN
     Indication: URINARY TRACT INFECTION
     Dosage: 1000 MILLIGRAM, ONCE A DAY (500 MG, BID)
     Route: 048
  4. ICLUSIG [Suspect]
     Active Substance: PONATINIB
     Dosage: 45 MILLIGRAM, ONCE A DAY
     Route: 065
     Dates: start: 201709
  5. ICLUSIG [Suspect]
     Active Substance: PONATINIB
     Dosage: 45 MILLIGRAM, ONCE A DAY
     Route: 048
     Dates: start: 201812, end: 20190127
  6. ICLUSIG [Suspect]
     Active Substance: PONATINIB
     Indication: LEUKAEMIA GRANULOCYTIC
     Dosage: 45 MILLIGRAM, ONCE A DAY
     Route: 048
     Dates: start: 201901, end: 20190127

REACTIONS (5)
  - Rash erythematous [Unknown]
  - Dermatitis allergic [Recovered/Resolved]
  - Urinary tract infection [Unknown]
  - Rash macular [Unknown]
  - Off label use [Unknown]

NARRATIVE: CASE EVENT DATE: 201710
